FAERS Safety Report 7387244-4 (Version None)
Quarter: 2011Q1

REPORT INFORMATION
  Report Type: 
  Country: None (occurrence: None)
  Receive Date: 20110331
  Receipt Date: 20110328
  Transmission Date: 20110831
  Serious: Yes (Other)
  Sender: FDA-Public Use
  Company Number: US-PFIZER INC-2010161363

PATIENT
  Sex: Female
  Weight: 69.399 kg

DRUGS (9)
  1. DOXIL [Concomitant]
     Dosage: FREQUENCY: EVERY 4 WEEKS
     Route: 042
  2. CALCIUM [Concomitant]
     Dosage: 1200 MG, 1X/DAY
  3. VITAMIN D [Concomitant]
     Dosage: UNIT DOSE: 1000;
  4. ATIVAN [Concomitant]
     Indication: AGITATION
     Dosage: FREQUENCY: AS NEEDED,
  5. ATIVAN [Concomitant]
     Indication: INSOMNIA
  6. TOVIAZ [Suspect]
     Indication: URINARY INCONTINENCE
     Dosage: 4 MG, 1X/DAY
     Route: 048
     Dates: start: 20100901
  7. AREDIA [Concomitant]
     Dosage: FREQUENCY: EVERY 6 WEEKS,
     Route: 042
  8. WARFARIN [Concomitant]
     Dosage: 5 MG, 1X/DAY
  9. NEURONTIN [Concomitant]
     Dosage: FREQUENCY: 4 TIMES DAILY,

REACTIONS (1)
  - NOCTURIA [None]
